FAERS Safety Report 18715748 (Version 1)
Quarter: 2021Q1

REPORT INFORMATION
  Report Type: Spontaneous
  Country: US (occurrence: US)
  Receive Date: 20210108
  Receipt Date: 20210108
  Transmission Date: 20210419
  Serious: Yes (Other)
  Sender: FDA-Public Use
  Company Number: US-CURIUM-2020000543

PATIENT
  Age: 64 Year
  Sex: Female

DRUGS (6)
  1. SORAFENIB [Concomitant]
     Active Substance: SORAFENIB
     Indication: PAPILLARY THYROID CANCER
  2. SODIUM IODIDE I 131 [Suspect]
     Active Substance: SODIUM IODIDE I-131
     Indication: RADIOACTIVE IODINE THERAPY
     Route: 065
  3. SODIUM IODIDE I 131 [Suspect]
     Active Substance: SODIUM IODIDE I-131
     Indication: RADIOACTIVE IODINE THERAPY
     Route: 065
  4. DABRAFENIB [Concomitant]
     Active Substance: DABRAFENIB
     Indication: PAPILLARY THYROID CANCER
  5. SODIUM IODIDE I 131 [Suspect]
     Active Substance: SODIUM IODIDE I-131
     Indication: RADIOACTIVE IODINE THERAPY
     Route: 065
  6. LENVATINIB [Concomitant]
     Active Substance: LENVATINIB
     Indication: PAPILLARY THYROID CANCER

REACTIONS (1)
  - Disease recurrence [Unknown]
